FAERS Safety Report 14668931 (Version 17)
Quarter: 2019Q1

REPORT INFORMATION
  Report Type: Report from Study
  Country: US (occurrence: US)
  Receive Date: 20180322
  Receipt Date: 20190211
  Transmission Date: 20190417
  Serious: Yes (Hospitalization, Other)
  Sender: FDA-Public Use
  Company Number: US-ACTELION-A-NJ2018-169564

PATIENT
  Age: 79 Year
  Sex: Female
  Weight: 43.84 kg

DRUGS (9)
  1. TYVASO [Suspect]
     Active Substance: TREPROSTINIL
     Indication: PRODUCT USED FOR UNKNOWN INDICATION
     Route: 055
  2. TYVASO [Suspect]
     Active Substance: TREPROSTINIL
     Dosage: 9 BREATHS PER TREATMENT
     Route: 055
  3. AMLODIPINE [Concomitant]
     Active Substance: AMLODIPINE BESYLATE
  4. ORENITRAM [Concomitant]
     Active Substance: TREPROSTINIL
  5. COUMADIN [Concomitant]
     Active Substance: WARFARIN SODIUM
  6. TYVASO [Suspect]
     Active Substance: TREPROSTINIL
     Dosage: 6 BREATHS/MIN, UNK
     Route: 055
  7. OPSUMIT [Suspect]
     Active Substance: MACITENTAN
     Indication: PULMONARY HYPERTENSION
     Dosage: 10 MG, QD
     Route: 048
  8. FLOLAN [Concomitant]
     Active Substance: EPOPROSTENOL SODIUM
  9. REVATIO [Concomitant]
     Active Substance: SILDENAFIL CITRATE

REACTIONS (20)
  - Pain in extremity [Unknown]
  - Oropharyngeal pain [Recovered/Resolved]
  - Abdominal pain [Unknown]
  - Fluid retention [Unknown]
  - Fall [Unknown]
  - Upper limb fracture [Unknown]
  - Gastroenteritis norovirus [Unknown]
  - Head injury [Unknown]
  - Device dislocation [Unknown]
  - Limb injury [Unknown]
  - Product dose omission [Unknown]
  - Cardiac failure congestive [Unknown]
  - Diarrhoea [Unknown]
  - Haematoma [Unknown]
  - Neuropathy peripheral [Unknown]
  - Cough [Not Recovered/Not Resolved]
  - Vomiting [Unknown]
  - Dehydration [Unknown]
  - Decreased appetite [Unknown]
  - Headache [Unknown]

NARRATIVE: CASE EVENT DATE: 20180411
